FAERS Safety Report 21463373 (Version 1)
Quarter: 2022Q4

REPORT INFORMATION
  Report Type: Spontaneous
  Country: CN (occurrence: CN)
  Receive Date: 20221017
  Receipt Date: 20221017
  Transmission Date: 20230113
  Serious: Yes (Other)
  Sender: FDA-Public Use
  Company Number: CN-TWI PHARMACEUTICAL, INC-2022SCTW000083

PATIENT

DRUGS (2)
  1. DILTIAZEM HYDROCHLORIDE [Suspect]
     Active Substance: DILTIAZEM HYDROCHLORIDE
     Indication: Pulmonary arterial hypertension
     Dosage: 6 MG/KG/DAY
     Route: 048
  2. DILTIAZEM HYDROCHLORIDE [Suspect]
     Active Substance: DILTIAZEM HYDROCHLORIDE
     Indication: Heritable pulmonary arterial hypertension

REACTIONS (3)
  - Atrioventricular block second degree [Unknown]
  - Hypotension [Not Recovered/Not Resolved]
  - Sinus bradycardia [Not Recovered/Not Resolved]
